FAERS Safety Report 5760461-2 (Version None)
Quarter: 2008Q2

REPORT INFORMATION
  Report Type: 
  Country: None (occurrence: None)
  Receive Date: 20080602
  Receipt Date: 20080515
  Transmission Date: 20081010
  Serious: Yes (Death)
  Sender: FDA-Public Use
  Company Number: 2008AL005221

PATIENT
  Age: 85 Year
  Sex: Male

DRUGS (5)
  1. DIGOXIN [Suspect]
     Dosage: .125MG, QD, PO
     Route: 048
     Dates: end: 20080301
  2. SYNTHROID [Concomitant]
  3. VASOTEC [Concomitant]
  4. DILTIAZEM [Concomitant]
  5. TRENTAL [Concomitant]

REACTIONS (1)
  - DEATH [None]
